FAERS Safety Report 19120626 (Version 1)
Quarter: 2021Q2

REPORT INFORMATION
  Report Type: Spontaneous
  Country: US (occurrence: US)
  Receive Date: 20210412
  Receipt Date: 20210412
  Transmission Date: 20210717
  Serious: Yes (Life-Threatening, Hospitalization)
  Sender: FDA-Public Use
  Company Number: None

PATIENT
  Age: 72 Year
  Sex: Male
  Weight: 119 kg

DRUGS (1)
  1. CABOZANTINIB (CABOZANTINIB 60MG TAB) [Suspect]
     Active Substance: CABOZANTINIB
     Indication: PYELONEPHRITIS
     Route: 048
     Dates: start: 20210111, end: 20210218

REACTIONS (8)
  - Fatigue [None]
  - Neutrophil count decreased [None]
  - Sepsis [None]
  - Acute myocardial infarction [None]
  - Dysphonia [None]
  - Somnolence [None]
  - Pyelonephritis [None]
  - Dyspnoea exertional [None]

NARRATIVE: CASE EVENT DATE: 20210219
